FAERS Safety Report 22230333 (Version 1)
Quarter: 2023Q2

REPORT INFORMATION
  Report Type: Spontaneous
  Country: US (occurrence: US)
  Receive Date: 20230419
  Receipt Date: 20230419
  Transmission Date: 20230721
  Serious: Yes (Other)
  Sender: FDA-Public Use
  Company Number: US-BoehringerIngelheim-2023-BI-232533

PATIENT
  Age: 74 Year
  Sex: Male

DRUGS (1)
  1. JARDIANCE [Suspect]
     Active Substance: EMPAGLIFLOZIN
     Indication: Product used for unknown indication
     Route: 048

REACTIONS (3)
  - Hip fracture [Not Recovered/Not Resolved]
  - Hypoacusis [Not Recovered/Not Resolved]
  - Memory impairment [Not Recovered/Not Resolved]
